FAERS Safety Report 7264772-3 (Version None)
Quarter: 2011Q1

REPORT INFORMATION
  Report Type: 
  Country: None (occurrence: None)
  Receive Date: 20110131
  Receipt Date: 20110125
  Transmission Date: 20110831
  Serious: Yes (Hospitalization, Disabling)
  Sender: FDA-Public Use
  Company Number: US-PFIZER INC-2010072346

PATIENT
  Sex: Male

DRUGS (6)
  1. ALBUTEROL SULFATE [Concomitant]
     Indication: ASTHMA
     Dosage: UNK
     Dates: start: 20010101
  2. CHANTIX [Suspect]
     Indication: SMOKING CESSATION THERAPY
     Dosage: 0.5MG AND 1MG
     Dates: start: 20080326, end: 20081031
  3. VALIUM [Concomitant]
     Indication: PANIC ATTACK
  4. VALIUM [Concomitant]
     Indication: ANXIETY
     Dosage: UNK
     Dates: start: 20080101, end: 20081031
  5. AMOXICILLIN [Concomitant]
     Indication: ANTIBIOTIC THERAPY
     Dosage: UNK
     Dates: start: 20071001
  6. DARVOCET-N 100 [Concomitant]
     Indication: PAIN
     Dosage: UNK
     Dates: start: 20080101, end: 20081031

REACTIONS (2)
  - INTENTIONAL OVERDOSE [None]
  - SUICIDE ATTEMPT [None]
